FAERS Safety Report 13835266 (Version 12)
Quarter: 2020Q4

REPORT INFORMATION
  Report Type: Report from Study
  Country: None (occurrence: NL)
  Receive Date: 20170804
  Receipt Date: 20201224
  Transmission Date: 20210113
  Serious: Yes (Other)
  Sender: FDA-Public Use
  Company Number: NL-ABBVIE-17K-114-2060766-00

PATIENT
  Age: 76 Year
  Sex: Male
  Weight: 60 kg

DRUGS (9)
  1. MOVICOLON [Concomitant]
     Active Substance: POLYETHYLENE GLYCOL 3350\POTASSIUM CHLORIDE\SODIUM BICARBONATE\SODIUM CHLORIDE
     Indication: ABNORMAL FAECES
     Dosage: HALF SACHET PER DAY
  2. DUODOPA [Suspect]
     Active Substance: CARBIDOPA\LEVODOPA
     Dosage: CD: 3.5; AFTER 4 PM: 3.8, ED: 2.5
     Route: 050
  3. DUODOPA [Suspect]
     Active Substance: CARBIDOPA\LEVODOPA
     Dosage: MD: 10.5 ML, CD: 3.7 ML/H, ED: 2.5 ML REMAINS AT 16 HOURS
     Route: 050
  4. MADOPAR [Concomitant]
     Active Substance: BENSERAZIDE HYDROCHLORIDE\LEVODOPA
     Indication: PARKINSON^S DISEASE
     Dosage: ONCE IN THE MORNING  BEFORE THE PUMP IS CONNECTED
     Route: 048
  5. NEUPRO [Concomitant]
     Active Substance: ROTIGOTINE
     Indication: PARKINSON^S DISEASE
  6. DUODOPA [Suspect]
     Active Substance: CARBIDOPA\LEVODOPA
     Dosage: MD 10.5, CD 3.5, ED 3.0
     Route: 050
  7. NEUPRO [Concomitant]
     Active Substance: ROTIGOTINE
     Indication: PRODUCT USED FOR UNKNOWN INDICATION
  8. DUODOPA [Suspect]
     Active Substance: CARBIDOPA\LEVODOPA
     Indication: PARKINSON^S DISEASE
     Dosage: MD 10.5 CD 3.7 ED 2.5
     Route: 050
     Dates: start: 20160607
  9. MACROGOL [Concomitant]
     Active Substance: POLYETHYLENE GLYCOLS
     Indication: ABNORMAL FAECES

REACTIONS (50)
  - Depressed mood [Not Recovered/Not Resolved]
  - Feeling abnormal [Recovered/Resolved]
  - Freezing phenomenon [Not Recovered/Not Resolved]
  - Weight decreased [Recovered/Resolved]
  - Extra dose administered [Unknown]
  - Dysstasia [Not Recovered/Not Resolved]
  - Device expulsion [Unknown]
  - Abnormal dreams [Recovered/Resolved]
  - Hyperkinesia [Recovered/Resolved]
  - Parkinson^s disease [Not Recovered/Not Resolved]
  - Influenza like illness [Recovered/Resolved]
  - Loss of personal independence in daily activities [Not Recovered/Not Resolved]
  - Memory impairment [Unknown]
  - Loss of consciousness [Recovered/Resolved]
  - Hypophagia [Recovered/Resolved]
  - Stoma site inflammation [Recovered/Resolved]
  - Hallucination [Not Recovered/Not Resolved]
  - Stress [Not Recovered/Not Resolved]
  - Fluid intake reduced [Recovered/Resolved]
  - Memory impairment [Recovered/Resolved]
  - Dystonia [Not Recovered/Not Resolved]
  - Dysgeusia [Not Recovered/Not Resolved]
  - Weight decreased [Recovering/Resolving]
  - Tremor [Not Recovered/Not Resolved]
  - Hallucination [Recovered/Resolved]
  - On and off phenomenon [Not Recovered/Not Resolved]
  - Increased appetite [Unknown]
  - Incorrect dose administered [Unknown]
  - Device issue [Unknown]
  - Gait disturbance [Not Recovered/Not Resolved]
  - Muscle spasms [Not Recovered/Not Resolved]
  - Impaired quality of life [Unknown]
  - Loss of consciousness [Unknown]
  - Mental disorder [Not Recovered/Not Resolved]
  - COVID-19 [Unknown]
  - Syncope [Not Recovered/Not Resolved]
  - Medical device site dryness [Unknown]
  - Bradyphrenia [Not Recovered/Not Resolved]
  - Speech disorder [Not Recovered/Not Resolved]
  - Decreased appetite [Recovered/Resolved]
  - Fall [Not Recovered/Not Resolved]
  - General physical health deterioration [Not Recovered/Not Resolved]
  - Feeling abnormal [Not Recovered/Not Resolved]
  - Fatigue [Not Recovered/Not Resolved]
  - Faeces hard [Not Recovered/Not Resolved]
  - Diplopia [Not Recovered/Not Resolved]
  - Hyperhidrosis [Not Recovered/Not Resolved]
  - Depression [Not Recovered/Not Resolved]
  - Hyperkinesia [Not Recovered/Not Resolved]
  - Delirium [Recovered/Resolved]

NARRATIVE: CASE EVENT DATE: 201707
